FAERS Safety Report 10331563 (Version 2)
Quarter: 2014Q3

REPORT INFORMATION
  Report Type: Report from Study
  Country: FR (occurrence: FR)
  Receive Date: 20140722
  Receipt Date: 20140722
  Transmission Date: 20150326
  Serious: Yes (Death, Life-Threatening, Hospitalization)
  Sender: FDA-Public Use
  Company Number: FR-B.I. PHARMACEUTICALS,INC./RIDGEFIELD-2011-FF-00652FF

PATIENT
  Age: 71 Year
  Sex: Male
  Weight: 74 kg

DRUGS (12)
  1. BROMAZEPAM [Concomitant]
     Active Substance: BROMAZEPAM
     Indication: ANXIETY
     Dosage: DAILY DOSE:1.5 MG PER DAY
     Route: 048
     Dates: start: 2003
  2. FUNGIZONE [Suspect]
     Active Substance: AMPHOTERICIN B
     Indication: STOMATITIS
     Route: 048
     Dates: start: 20110725, end: 20110728
  3. PLAVIX [Concomitant]
     Active Substance: CLOPIDOGREL BISULFATE
     Indication: AORTIC ANEURYSM
     Dosage: 75 MG
     Route: 048
     Dates: start: 2006
  4. ALLOPURINOL. [Concomitant]
     Active Substance: ALLOPURINOL
     Indication: HYPERURICAEMIA
     Dosage: 300 MG
     Route: 048
     Dates: start: 2003
  5. MOPRAL [Concomitant]
     Active Substance: OMEPRAZOLE SODIUM
     Indication: STOMATITIS
     Dosage: 20 MG
     Route: 048
     Dates: start: 20110620, end: 20110729
  6. DOCETAXEL [Suspect]
     Active Substance: DOCETAXEL
     Indication: SMALL CELL LUNG CANCER
     Dosage: DAILY DOSE:75 MG/M? : DAILY DOSE: 150 MG
     Route: 042
     Dates: start: 20110531, end: 20110621
  7. JANUVIA [Concomitant]
     Active Substance: SITAGLIPTIN PHOSPHATE
     Indication: DIABETES MELLITUS
     Dosage: 100 MG
     Route: 048
     Dates: start: 201010
  8. ZYLORIC [Suspect]
     Active Substance: ALLOPURINOL
     Indication: HYPERURICAEMIA
     Dosage: 300 MG
     Route: 048
     Dates: start: 20110725, end: 20110728
  9. NOVONORM [Concomitant]
     Active Substance: REPAGLINIDE
     Indication: DIABETES MELLITUS
     Dosage: 3 MG
     Route: 048
     Dates: start: 2010, end: 20110728
  10. BIBW 2992 [Suspect]
     Active Substance: AFATINIB
     Indication: SMALL CELL LUNG CANCER
     Dosage: 40 MG
     Route: 048
     Dates: start: 20110601, end: 20110630
  11. CRESTOR [Concomitant]
     Active Substance: ROSUVASTATIN CALCIUM
     Indication: DIABETES MELLITUS
     Dosage: 5 MG
     Route: 048
     Dates: start: 2006
  12. EFFERALGAN [Concomitant]
     Active Substance: ACETAMINOPHEN
     Indication: PAIN
     Dosage: DAILY DOSE:AS REQUIRED
     Route: 048
     Dates: start: 20110530

REACTIONS (16)
  - Oral pain [Recovered/Resolved]
  - Weight decreased [Unknown]
  - Dysphagia [Recovered/Resolved]
  - Malignant neoplasm progression [Fatal]
  - Neutropenia [Recovered/Resolved]
  - Stomatitis [Unknown]
  - Diarrhoea [Recovered/Resolved]
  - Renal failure [Recovered/Resolved]
  - Weight decreased [Recovered/Resolved]
  - Decreased appetite [Unknown]
  - Decreased appetite [Recovered/Resolved]
  - Stomatitis [Recovered/Resolved]
  - General physical health deterioration [Unknown]
  - Pyrexia [Recovered/Resolved]
  - Diarrhoea [Recovered/Resolved]
  - Pneumonia [Unknown]

NARRATIVE: CASE EVENT DATE: 20110605
